FAERS Safety Report 17037434 (Version 2)
Quarter: 2019Q4

REPORT INFORMATION
  Report Type: Other
  Country: CA (occurrence: CA)
  Receive Date: 20191115
  Receipt Date: 20191213
  Transmission Date: 20200122
  Serious: Yes (Other)
  Sender: FDA-Public Use
  Company Number: CA-APOTEX-2019AP024716

PATIENT
  Age: 20 Year
  Sex: Female

DRUGS (1)
  1. CARBAMAZEPINE. [Suspect]
     Active Substance: CARBAMAZEPINE
     Indication: EPILEPSY
     Dosage: 200 MG, BID
     Route: 048

REACTIONS (3)
  - Product substitution issue [Recovered/Resolved]
  - Drug ineffective [Recovered/Resolved]
  - Seizure [Recovered/Resolved]
